FAERS Safety Report 5320835-0 (Version None)
Quarter: 2007Q2

REPORT INFORMATION
  Report Type: 
  Country: None (occurrence: None)
  Receive Date: 20070502
  Receipt Date: 20061005
  Transmission Date: 20071010
  Serious: Yes (Hospitalization)
  Sender: FDA-Public Use
  Company Number: 06C021

PATIENT
  Age: 10 Year
  Sex: Male

DRUGS (3)
  1. SOTRADECOL [Suspect]
     Indication: MALFORMATION VENOUS
     Dosage: 10CC, SINGLE DOSE, IV
     Route: 042
     Dates: start: 20061004
  2. SOTRADECOL [Suspect]
  3. ETHIODOL [Concomitant]

REACTIONS (3)
  - CHROMATURIA [None]
  - DIARRHOEA [None]
  - RENAL FAILURE ACUTE [None]
